FAERS Safety Report 5593633-0 (Version None)
Quarter: 2008Q1

REPORT INFORMATION
  Report Type: 
  Country: None (occurrence: None)
  Receive Date: 20080116
  Receipt Date: 20080110
  Transmission Date: 20080703
  Serious: Yes (Other)
  Sender: FDA-Public Use
  Company Number: ES-RANBAXY-2008RR-12495

PATIENT

DRUGS (2)
  1. ENALAPRIL COMBINOPHARM 20MG COMPRIMIDOS EFG [Suspect]
  2. GLIPIZIDE [Suspect]
     Indication: TYPE 2 DIABETES MELLITUS
     Dosage: 5 MG, BID

REACTIONS (2)
  - DRUG INTERACTION [None]
  - PANCYTOPENIA [None]
